FAERS Safety Report 5992083-2 (Version None)
Quarter: 2008Q4

REPORT INFORMATION
  Report Type: 
  Country: None (occurrence: None)
  Receive Date: 20081211
  Receipt Date: 20080828
  Transmission Date: 20090506
  Serious: No
  Sender: FDA-Public Use
  Company Number: US-AMGEN-KDL304620

PATIENT
  Sex: Male
  Weight: 88.5 kg

DRUGS (1)
  1. ENBREL [Suspect]
     Indication: PSORIATIC ARTHROPATHY
     Route: 058
     Dates: start: 20070226

REACTIONS (2)
  - DRUG EFFECT DECREASED [None]
  - PSORIATIC ARTHROPATHY [None]
